FAERS Safety Report 12190209 (Version 3)
Quarter: 2016Q3

REPORT INFORMATION
  Report Type: Report from Study
  Country: US (occurrence: US)
  Receive Date: 20160318
  Receipt Date: 20160919
  Transmission Date: 20161109
  Serious: No
  Sender: FDA-Public Use
  Company Number: PHEH2016US006572

PATIENT
  Sex: Female

DRUGS (1)
  1. GILENYA [Suspect]
     Active Substance: FINGOLIMOD HYDROCHLORIDE
     Indication: MULTIPLE SCLEROSIS
     Dosage: 0.5 MG, QD
     Route: 048
     Dates: start: 20151119

REACTIONS (6)
  - Sensory disturbance [Unknown]
  - Hypoaesthesia [Unknown]
  - Pain in extremity [Unknown]
  - Alopecia [Not Recovered/Not Resolved]
  - Back pain [Not Recovered/Not Resolved]
  - Radicular pain [Not Recovered/Not Resolved]

NARRATIVE: CASE EVENT DATE: 2015
